FAERS Safety Report 19658713 (Version 1)
Quarter: 2021Q3

REPORT INFORMATION
  Report Type: Other
  Country: CA (occurrence: CA)
  Receive Date: 20210805
  Receipt Date: 20210805
  Transmission Date: 20211014
  Serious: Yes (Other)
  Sender: FDA-Public Use
  Company Number: CA-APOTEX-2021AP026300

PATIENT
  Age: 13 Year
  Sex: Male

DRUGS (17)
  1. AZACITIDINE. [Suspect]
     Active Substance: AZACITIDINE
     Indication: PRADER-WILLI SYNDROME
     Dosage: UNK
     Route: 065
  2. METHOTREXATE. [Concomitant]
     Active Substance: METHOTREXATE
     Indication: PROPHYLAXIS AGAINST GRAFT VERSUS HOST DISEASE
     Dosage: UNK
     Route: 065
  3. BUSULFAN INJECTION [Suspect]
     Active Substance: BUSULFAN
     Indication: MYELODYSPLASTIC SYNDROME
  4. METHOTREXATE. [Suspect]
     Active Substance: METHOTREXATE
     Indication: PROPHYLAXIS
     Dosage: UNK
     Route: 065
  5. BUSULFAN INJECTION [Suspect]
     Active Substance: BUSULFAN
     Indication: PRADER-WILLI SYNDROME
     Dosage: UNK
     Route: 065
  6. CYCLOPHOSPHAMIDE. [Suspect]
     Active Substance: CYCLOPHOSPHAMIDE
     Indication: BONE MARROW CONDITIONING REGIMEN
  7. AZACITIDINE. [Suspect]
     Active Substance: AZACITIDINE
     Indication: ALLOGENIC STEM CELL TRANSPLANTATION
  8. CYCLOPHOSPHAMIDE. [Suspect]
     Active Substance: CYCLOPHOSPHAMIDE
     Indication: PRADER-WILLI SYNDROME
     Dosage: 120 MILLIGRAM/KILOGRAM
     Route: 065
  9. TACROLIMUS. [Suspect]
     Active Substance: TACROLIMUS
     Indication: PROPHYLAXIS
     Dosage: UNK
     Route: 065
  10. CYCLOPHOSPHAMIDE. [Suspect]
     Active Substance: CYCLOPHOSPHAMIDE
     Indication: MYELODYSPLASTIC SYNDROME
  11. AZACITIDINE. [Suspect]
     Active Substance: AZACITIDINE
     Indication: BONE MARROW CONDITIONING REGIMEN
  12. BUSULFAN INJECTION [Suspect]
     Active Substance: BUSULFAN
     Indication: BONE MARROW CONDITIONING REGIMEN
     Dosage: 3.2 MILLIGRAM/KILOGRAM, QD
     Route: 065
  13. BUSULFAN INJECTION [Suspect]
     Active Substance: BUSULFAN
     Indication: ALLOGENIC STEM CELL TRANSPLANTATION
  14. BUSULFAN INJECTION [Suspect]
     Active Substance: BUSULFAN
     Indication: STEM CELL TRANSPLANT
  15. CYCLOPHOSPHAMIDE. [Suspect]
     Active Substance: CYCLOPHOSPHAMIDE
     Indication: ALLOGENIC STEM CELL TRANSPLANTATION
  16. CYCLOPHOSPHAMIDE. [Suspect]
     Active Substance: CYCLOPHOSPHAMIDE
     Indication: STEM CELL TRANSPLANT
  17. TACROLIMUS. [Concomitant]
     Active Substance: TACROLIMUS
     Indication: PROPHYLAXIS AGAINST GRAFT VERSUS HOST DISEASE
     Dosage: UNK
     Route: 065

REACTIONS (5)
  - Product use in unapproved indication [Unknown]
  - Hypertension [Unknown]
  - Staphylococcal bacteraemia [Unknown]
  - Epstein-Barr virus infection reactivation [Unknown]
  - Stomatitis [Unknown]
